FAERS Safety Report 4611760-9 (Version None)
Quarter: 2005Q1

REPORT INFORMATION
  Report Type: 
  Country: None (occurrence: None)
  Receive Date: 20050308
  Receipt Date: 20041207
  Transmission Date: 20050727
  Serious: Yes (Other)
  Sender: FDA-Public Use
  Company Number: 2004UW24999

PATIENT
  Age: 74 Year
  Sex: Female
  Weight: 59.874 kg

DRUGS (4)
  1. CRESTOR [Suspect]
     Indication: BLOOD CHOLESTEROL INCREASED
     Dosage: 20 MG PO
     Route: 048
     Dates: start: 20040601
  2. ATENOLOL [Concomitant]
  3. HYZAAR [Concomitant]
  4. ASPIRIN [Concomitant]

REACTIONS (1)
  - ABDOMINAL DISTENSION [None]
